FAERS Safety Report 22345603 (Version 1)
Quarter: 2023Q2

REPORT INFORMATION
  Report Type: Spontaneous
  Country: GB (occurrence: GB)
  Receive Date: 20230519
  Receipt Date: 20230519
  Transmission Date: 20230722
  Serious: Yes (Other)
  Sender: FDA-Public Use
  Company Number: GB-MHRA-MED-202305151236564820-HSFWM

PATIENT
  Sex: Male

DRUGS (1)
  1. DOXAZOSIN [Suspect]
     Active Substance: DOXAZOSIN MESYLATE
     Indication: Blood pressure increased
     Dosage: UNK
     Route: 065
     Dates: start: 20230301, end: 20230320

REACTIONS (1)
  - Panic attack [Recovered/Resolved]

NARRATIVE: CASE EVENT DATE: 20230320
